FAERS Safety Report 14859728 (Version 1)
Quarter: 2018Q2

REPORT INFORMATION
  Report Type: Spontaneous
  Country: US (occurrence: US)
  Receive Date: 20180508
  Receipt Date: 20180508
  Transmission Date: 20180711
  Serious: No
  Sender: FDA-Public Use
  Company Number: US-PFIZER INC-2018186990

PATIENT
  Age: 40 Year
  Sex: Female

DRUGS (3)
  1. EFFEXOR XR [Suspect]
     Active Substance: VENLAFAXINE HYDROCHLORIDE
     Dosage: 75 MG, 1X/DAY
  2. PROAIR HFA [Suspect]
     Active Substance: ALBUTEROL SULFATE
     Dosage: UNK
  3. OXYBUTIN ER [Suspect]
     Active Substance: OXYBUTYNIN CHLORIDE
     Dosage: 10 MG, UNK

REACTIONS (1)
  - Drug hypersensitivity [Unknown]
